FAERS Safety Report 11164768 (Version 2)
Quarter: 2015Q3

REPORT INFORMATION
  Report Type: Report from Study
  Country: DE (occurrence: CO)
  Receive Date: 20150604
  Receipt Date: 20150708
  Transmission Date: 20151125
  Serious: Yes (Death, Hospitalization)
  Sender: FDA-Public Use
  Company Number: DE-ACTELION-A-US2015-118990

PATIENT
  Age: 40 Year
  Sex: Female

DRUGS (7)
  1. AMBRISENTAN [Concomitant]
     Active Substance: AMBRISENTAN
  2. DIGOXINE [Concomitant]
     Active Substance: DIGOXIN
  3. CALCIUM [Concomitant]
     Active Substance: CALCIUM
  4. PREDNISOLONE. [Concomitant]
     Active Substance: PREDNISOLONE
  5. LEVOTHYROXINE. [Concomitant]
     Active Substance: LEVOTHYROXINE
  6. VENTAVIS [Suspect]
     Active Substance: ILOPROST
     Indication: PULMONARY HYPERTENSION
     Dosage: UNK, QID
     Route: 055
     Dates: start: 20141119
  7. OMEPRAZOLE. [Concomitant]
     Active Substance: OMEPRAZOLE

REACTIONS (3)
  - Cardiac arrest [Fatal]
  - Adverse event [Unknown]
  - Off label use [Unknown]

NARRATIVE: CASE EVENT DATE: 20141203
